FAERS Safety Report 14876645 (Version 9)
Quarter: 2018Q4

REPORT INFORMATION
  Report Type: Spontaneous
  Country: ES (occurrence: ES)
  Receive Date: 20180510
  Receipt Date: 20181207
  Transmission Date: 20190204
  Serious: Yes (Hospitalization, Other)
  Sender: FDA-Public Use
  Company Number: ES-ASTRAZENECA-2018SE60380

PATIENT
  Age: 87 Year
  Sex: Male

DRUGS (11)
  1. BUDESONIDE. [Suspect]
     Active Substance: BUDESONIDE
     Route: 055
  2. QUETIAPINE. [Suspect]
     Active Substance: QUETIAPINE
     Dosage: 25 MG, TID (2-2-1), DRUG INTERVAL DOSAGE UNIT NUMBER:1
     Route: 048
  3. APIXABAN [Suspect]
     Active Substance: APIXABAN
     Indication: CEREBROVASCULAR ACCIDENT PROPHYLAXIS
     Route: 065
  4. VILDAGLIPTIN [Suspect]
     Active Substance: VILDAGLIPTIN
     Indication: TYPE 2 DIABETES MELLITUS
     Route: 048
  5. VILDAGLIPTIN [Suspect]
     Active Substance: VILDAGLIPTIN
     Indication: TYPE 2 DIABETES MELLITUS
     Route: 048
  6. FENTANYL. [Suspect]
     Active Substance: FENTANYL
     Indication: DYSPNOEA
     Route: 048
  7. FUROSEMIDE. [Suspect]
     Active Substance: FUROSEMIDE
     Dosage: MYLAN 40 MG DAILY
     Route: 048
  8. IPRATROPIUM BROMIDE. [Suspect]
     Active Substance: IPRATROPIUM BROMIDE
     Route: 045
  9. FLUOXETINE [Suspect]
     Active Substance: FLUOXETINE HYDROCHLORIDE
     Indication: PRODUCT USED FOR UNKNOWN INDICATION
     Route: 065
  10. MIRABEGRON [Suspect]
     Active Substance: MIRABEGRON
     Route: 065
  11. LATANOPROST. [Suspect]
     Active Substance: LATANOPROST
     Route: 065

REACTIONS (14)
  - Bone marrow oedema [Unknown]
  - Tachypnoea [Unknown]
  - Dyspnoea [Recovered/Resolved]
  - Haemoglobin abnormal [Unknown]
  - Heart rate abnormal [Unknown]
  - Blood pressure abnormal [Unknown]
  - Arrhythmia [Unknown]
  - Oedema peripheral [Unknown]
  - C-reactive protein abnormal [Unknown]
  - Respiratory failure [Recovered/Resolved]
  - Peripheral venous disease [Unknown]
  - White blood cell count abnormal [Unknown]
  - Respiratory tract infection [Unknown]
  - Bronchiectasis [Unknown]
